FAERS Safety Report 9261673 (Version 2)
Quarter: 2013Q2

REPORT INFORMATION
  Report Type: Spontaneous
  Country: US (occurrence: US)
  Receive Date: 20130429
  Receipt Date: 20130523
  Transmission Date: 20140414
  Serious: Yes (Hospitalization, Other)
  Sender: FDA-Public Use
  Company Number: US-PFIZER INC-2013132057

PATIENT
  Age: 60 Year
  Sex: Female
  Weight: 74.83 kg

DRUGS (9)
  1. LYRICA [Suspect]
     Indication: NEURALGIA
     Dosage: 75 MG, 3X/DAY
     Dates: start: 2012, end: 201304
  2. LYRICA [Suspect]
     Indication: SPINAL DISORDER
     Dosage: 75 MG, 1X/DAY
  3. TOPROL XL [Concomitant]
     Dosage: UNK
  4. FUROSEMIDE [Concomitant]
     Dosage: UNK
  5. MAGNESIUM [Concomitant]
     Dosage: UNK
  6. POTASSIUM [Concomitant]
     Dosage: UNK
  7. TEMAZEPAM [Concomitant]
     Dosage: UNK
  8. CYCLOBENZAPRINE [Concomitant]
     Dosage: UNK
  9. NEXIUM [Concomitant]
     Dosage: UNK

REACTIONS (7)
  - Pneumonia [Unknown]
  - Swelling [Not Recovered/Not Resolved]
  - Asthenia [Unknown]
  - Cardiac disorder [Unknown]
  - Drug intolerance [Unknown]
  - Malaise [Unknown]
  - Intentional drug misuse [Unknown]
